FAERS Safety Report 17510731 (Version 1)
Quarter: 2020Q1

REPORT INFORMATION
  Report Type: Spontaneous
  Country: IR (occurrence: IR)
  Receive Date: 20200306
  Receipt Date: 20200306
  Transmission Date: 20200409
  Serious: Yes (Hospitalization, Other)
  Sender: FDA-Public Use
  Company Number: IR-TASMAN PHARMA, INC.-2020TSM00080

PATIENT
  Age: 58 Year
  Sex: Male

DRUGS (2)
  1. CLOZAPINE. [Suspect]
     Active Substance: CLOZAPINE
     Indication: SCHIZOPHRENIA
     Dosage: 25 MG, 1X/DAY
     Route: 065
     Dates: start: 201703, end: 2017
  2. CLOZAPINE. [Suspect]
     Active Substance: CLOZAPINE
     Dosage: 150 MG (RAISED TO 150 MG/DAY OVER 7 WEEKS DIVIDEDLY)
     Route: 065
     Dates: start: 2017, end: 2017

REACTIONS (2)
  - Hepatotoxicity [Recovered/Resolved]
  - Agranulocytosis [Recovered/Resolved]

NARRATIVE: CASE EVENT DATE: 2017
